FAERS Safety Report 23528678 (Version 1)
Quarter: 2024Q1

REPORT INFORMATION
  Report Type: Spontaneous
  Country: CA (occurrence: CA)
  Receive Date: 20240215
  Receipt Date: 20240215
  Transmission Date: 20240409
  Serious: Yes (Other)
  Sender: FDA-Public Use
  Company Number: CA-HLS-202400342

PATIENT
  Age: 40 Year
  Sex: Female
  Weight: 103 kg

DRUGS (23)
  1. CALCIUM CARBONATE [Concomitant]
     Active Substance: CALCIUM CARBONATE
     Indication: Product used for unknown indication
     Dosage: 1 EVERY 24 HOURS?AMOUNT: 500 MILLIGRAM?NOT SPECIFIED DOSAGE FORM
     Route: 065
  2. CLONAZEPAM [Concomitant]
     Active Substance: CLONAZEPAM
     Indication: Product used for unknown indication
     Dosage: 2 EVERY 1 DAYS?AMOUNT: 0.25 MILLIGRAM?TABLETS DOSAGE FORM
     Route: 065
  3. CLOZAPINE [Suspect]
     Active Substance: CLOZAPINE
     Indication: Psychotic disorder
     Dosage: 2 EVERY 1 DAYS?TABLETS DOSAGE FORM
     Route: 065
  4. FERROUS FUMARATE [Concomitant]
     Active Substance: FERROUS FUMARATE
     Indication: Product used for unknown indication
     Dosage: 1 EVERY 24 HOURS?AMOUNT: 300 MILLIGRAM?NOT SPECIFIED DOSAGE FORM
     Route: 065
  5. LAMOTRIGINE [Concomitant]
     Active Substance: LAMOTRIGINE
     Indication: Product used for unknown indication
     Dosage: 2 EVERY 1 DAYS?AMOUNT: 75 MILLIGRAM?TABLETS DOSAGE FORM
     Route: 065
  6. LITHIUM [Suspect]
     Active Substance: LITHIUM
     Indication: Psychotic disorder
     Dosage: 1 EVERY 24 HOURS?AMOUNT: 1050 MILLIGRAM
     Route: 065
  7. LURASIDONE HYDROCHLORIDE [Concomitant]
     Active Substance: LURASIDONE HYDROCHLORIDE
     Indication: Product used for unknown indication
     Dosage: 1 EVERY 24 HOURS?AMOUNT: 20 MILLIGRAM
     Route: 065
  8. VITAMIN D [Concomitant]
     Active Substance: VITAMIN D NOS
     Indication: Product used for unknown indication
     Dosage: 1 EVERY 24 HOURS?NOT SPECIFIED DOSAGE FORM
     Route: 065
  9. ERGOCALCIFEROL [Concomitant]
     Active Substance: ERGOCALCIFEROL
     Indication: Schizoaffective disorder
     Dosage: 1 EVERY 12 HOURS?AMOUNT: 75 MILLIGRAM?TABLETS DOSAGE FORM
     Route: 065
  10. ERGOCALCIFEROL [Concomitant]
     Active Substance: ERGOCALCIFEROL
     Indication: Seizure
     Dosage: 1 EVERY 12 HOURS?AMOUNT: 75 MILLIGRAM?TABLETS DOSAGE FORM
     Route: 065
  11. ERGOCALCIFEROL [Concomitant]
     Active Substance: ERGOCALCIFEROL
     Indication: Product used for unknown indication
     Dosage: 1 EVERY 12 HOURS?AMOUNT: 75 MILLIGRAM?TABLETS DOSAGE FORM
     Route: 065
  12. ERGOCALCIFEROL [Concomitant]
     Active Substance: ERGOCALCIFEROL
     Indication: Schizoaffective disorder
     Dosage: 1 EVERY 24 HOURS?AMOUNT: 1000 IU (INTERNATIONAL UNIT)
     Route: 065
  13. ERGOCALCIFEROL [Concomitant]
     Active Substance: ERGOCALCIFEROL
     Indication: Seizure
     Dosage: 1 EVERY 24 HOURS?AMOUNT: 1000 IU (INTERNATIONAL UNIT)
     Route: 065
  14. ERGOCALCIFEROL [Concomitant]
     Active Substance: ERGOCALCIFEROL
     Indication: Product used for unknown indication
     Dosage: 1 EVERY 24 HOURS?AMOUNT: 1000 IU (INTERNATIONAL UNIT)
     Route: 065
  15. ERGOCALCIFEROL [Concomitant]
     Active Substance: ERGOCALCIFEROL
     Indication: Schizoaffective disorder
     Dosage: 1 EVERY 24 HOURS?AMOUNT: 20 MILLIGRAM
     Route: 065
  16. ERGOCALCIFEROL [Concomitant]
     Active Substance: ERGOCALCIFEROL
     Indication: Seizure
     Dosage: 1 EVERY 24 HOURS?AMOUNT: 20 MILLIGRAM
     Route: 065
  17. ERGOCALCIFEROL [Concomitant]
     Active Substance: ERGOCALCIFEROL
     Indication: Product used for unknown indication
     Dosage: 1 EVERY 24 HOURS?AMOUNT: 20 MILLIGRAM
     Route: 065
  18. ERGOCALCIFEROL [Concomitant]
     Active Substance: ERGOCALCIFEROL
     Indication: Schizoaffective disorder
     Dosage: 1 EVERY 24 HOURS?AMOUNT: 300 MILLIGRAM?NOT SPECIFIED DOSAGE FORM
     Route: 065
  19. ERGOCALCIFEROL [Concomitant]
     Active Substance: ERGOCALCIFEROL
     Indication: Seizure
     Dosage: 1 EVERY 24 HOURS?AMOUNT: 300 MILLIGRAM?NOT SPECIFIED DOSAGE FORM
     Route: 065
  20. ERGOCALCIFEROL [Concomitant]
     Active Substance: ERGOCALCIFEROL
     Indication: Product used for unknown indication
     Dosage: 1 EVERY 24 HOURS?AMOUNT: 300 MILLIGRAM?NOT SPECIFIED DOSAGE FORM
     Route: 065
  21. ERGOCALCIFEROL [Concomitant]
     Active Substance: ERGOCALCIFEROL
     Indication: Schizoaffective disorder
     Dosage: NOT SPECIFIED DOSAGE FORM
     Route: 065
  22. ERGOCALCIFEROL [Concomitant]
     Active Substance: ERGOCALCIFEROL
     Indication: Seizure
     Dosage: NOT SPECIFIED DOSAGE FORM
     Route: 065
  23. ERGOCALCIFEROL [Concomitant]
     Active Substance: ERGOCALCIFEROL
     Indication: Product used for unknown indication
     Dosage: NOT SPECIFIED DOSAGE FORM
     Route: 065

REACTIONS (2)
  - Drug resistance [Unknown]
  - Electroencephalogram abnormal [Unknown]
